FAERS Safety Report 6764390-7 (Version None)
Quarter: 2010Q2

REPORT INFORMATION
  Report Type: 
  Country: None (occurrence: None)
  Receive Date: 20100610
  Receipt Date: 20100602
  Transmission Date: 20101027
  Serious: Yes (Other)
  Sender: FDA-Public Use
  Company Number: GB-PFIZER INC-2010060156

PATIENT
  Age: 52 Year
  Sex: Male
  Weight: 109 kg

DRUGS (7)
  1. CHAMPIX [Suspect]
     Indication: SMOKING CESSATION THERAPY
     Dosage: 1 MG, 2X/DAY
     Route: 048
     Dates: start: 20100401, end: 20100101
  2. DHC [Concomitant]
     Dosage: 60 MG, UNK
     Route: 048
  3. ACETYLSALICYLIC ACID [Concomitant]
     Dosage: 75 MG, UNK
     Route: 048
     Dates: start: 20010101
  4. CLENIL [Concomitant]
     Dosage: 100 MG, 2X/DAY
     Route: 055
     Dates: start: 20030101
  5. SALBUTAMOL [Concomitant]
     Dosage: UNK
     Route: 055
  6. RAMIPRIL [Concomitant]
     Dosage: 10 MG, UNK
     Route: 048
     Dates: start: 20040101
  7. TRAMADOL [Concomitant]
     Indication: BACK PAIN
     Dosage: 50-100MG, 4X/DAY
     Route: 048

REACTIONS (2)
  - AGITATION [None]
  - MENTAL STATUS CHANGES [None]
